FAERS Safety Report 6734113-6 (Version None)
Quarter: 2010Q2

REPORT INFORMATION
  Report Type: 
  Country: None (occurrence: None)
  Receive Date: 20100518
  Receipt Date: 20100506
  Transmission Date: 20101027
  Serious: Yes (Death)
  Sender: FDA-Public Use
  Company Number: TPA2010A02664

PATIENT
  Age: 58 Year
  Sex: Male

DRUGS (1)
  1. DEXILANT [Suspect]
     Dosage: 60 MG, 1 IN 1 D, PER ORAL
     Route: 048
     Dates: start: 20100101, end: 20100101

REACTIONS (1)
  - NEOPLASM MALIGNANT [None]
